FAERS Safety Report 9166757 (Version 1)
Quarter: 2012Q4

REPORT INFORMATION
  Report Type: 
  Country: JP (occurrence: JP)
  Receive Date: 20121127
  Receipt Date: 20121127
  Transmission Date: 20130627
  Serious: Yes (Hospitalization, Other)
  Sender: FDA-Public Use
  Company Number: JP-RB-047214-12

PATIENT
  Sex: Male

DRUGS (2)
  1. LEPETAN [Suspect]
     Indication: PAIN
     Dosage: Dosing details unknown
     Route: 054
  2. PREGABALIN [Concomitant]
     Indication: PAIN
     Dosage: Dosing details unknown
     Route: 065

REACTIONS (3)
  - C-reactive protein increased [Unknown]
  - Arrhythmia [Unknown]
  - Hypotension [Unknown]
